FAERS Safety Report 9332875 (Version 1)
Quarter: 2013Q2

REPORT INFORMATION
  Report Type: Spontaneous
  Country: GB (occurrence: None)
  Receive Date: 20130603
  Receipt Date: 20130603
  Transmission Date: 20140414
  Serious: Yes (Other)
  Sender: FDA-Public Use
  Company Number: AUR-APL-2013-04429

PATIENT
  Sex: Male

DRUGS (2)
  1. GABAPENTIN (GABAPENTIN) [Suspect]
     Indication: CHEST PAIN
     Dosage: (400 MG, 4 IN 1 D)
  2. GABAPENTIN (GABAPENTIN) [Suspect]
     Indication: CONVULSION
     Dosage: (400 MG, 4 IN 1 D)

REACTIONS (4)
  - Balance disorder [None]
  - Disturbance in attention [None]
  - Muscle spasms [None]
  - Feeling abnormal [None]
